FAERS Safety Report 21583421 (Version 1)
Quarter: 2022Q4

REPORT INFORMATION
  Report Type: Spontaneous
  Country: DE (occurrence: DE)
  Receive Date: 20221111
  Receipt Date: 20221111
  Transmission Date: 20230113
  Serious: Yes (Hospitalization)
  Sender: FDA-Public Use
  Company Number: DE-ADRED-07877-01

PATIENT
  Age: 82 Year
  Sex: Female

DRUGS (13)
  1. FENTANYL [Suspect]
     Active Substance: FENTANYL
     Indication: Product used for unknown indication
     Dosage: 50 MCG, SCHEMA
     Route: 062
  2. SIMVASTATIN [Concomitant]
     Active Substance: SIMVASTATIN
     Dosage: 20 MG, 0-0-1-0
     Route: 065
  3. PREGABALIN [Concomitant]
     Active Substance: PREGABALIN
     Dosage: 100 MG, 1-0-1-0
     Route: 065
  4. METAMIZOL [Concomitant]
     Active Substance: METAMIZOLE SODIUM
     Dosage: 500 MG, 1-0-1-0
     Route: 065
  5. PREDNISOLONE [Concomitant]
     Active Substance: PREDNISOLONE
     Dosage: 1, 1-1-1-1
  6. INSULIN LISPRO [Concomitant]
     Active Substance: INSULIN LISPRO
     Dosage: SCHEMA
     Route: 058
  7. POLYETHYLENE GLYCOLS [Concomitant]
     Active Substance: POLYETHYLENE GLYCOLS
     Dosage: 1-0-0-0
     Route: 065
  8. OMEPRAZOLE [Concomitant]
     Active Substance: OMEPRAZOLE
     Dosage: 20 MG, 1-0-0-0
     Route: 065
  9. DEXPANTHENOL [Concomitant]
     Active Substance: DEXPANTHENOL
     Dosage: 1-1-1-1
  10. RAMIPRIL [Concomitant]
     Active Substance: RAMIPRIL
     Dosage: 5 MG, 1-0-0-0
     Route: 065
  11. METFORMIN [Concomitant]
     Active Substance: METFORMIN HYDROCHLORIDE
     Dosage: 50|100 MG, 1-0-1-0
     Route: 065
  12. MIRTAZAPINE [Concomitant]
     Active Substance: MIRTAZAPINE
     Dosage: 30 MG, 0-0-1-0
     Route: 065
  13. TORSEMIDE [Concomitant]
     Active Substance: TORSEMIDE
     Dosage: 20 MG, 2-2-0-0
     Route: 065

REACTIONS (13)
  - General physical health deterioration [Unknown]
  - Toxicity to various agents [Unknown]
  - Acute kidney injury [Unknown]
  - Acute respiratory failure [Unknown]
  - Renal impairment [Unknown]
  - Hyperglycaemia [Unknown]
  - Hyperkalaemia [Unknown]
  - Anaemia [Unknown]
  - Electrocardiogram abnormal [Unknown]
  - Tachycardia [Unknown]
  - Hypotension [Unknown]
  - Dyspnoea [Unknown]
  - Loss of consciousness [Unknown]
